FAERS Safety Report 8444103-3 (Version None)
Quarter: 2012Q2

REPORT INFORMATION
  Report Type: 
  Country: None (occurrence: None)
  Receive Date: 20120618
  Receipt Date: 20120615
  Transmission Date: 20120825
  Serious: Yes (Death, Other)
  Sender: FDA-Public Use
  Company Number: PHFR2012GB003315

PATIENT
  Sex: Male

DRUGS (3)
  1. LAMOTRIGINE [Concomitant]
     Indication: MUSCLE DISORDER
     Dosage: 150 MG, DAILY
     Route: 048
  2. CLOZARIL [Suspect]
     Indication: SCHIZOPHRENIA
     Dosage: 500 MG, DAILY
     Route: 048
     Dates: start: 20031001
  3. SIMVASTATIN [Concomitant]
     Indication: LIBIDO INCREASED
     Dosage: 20 MG, DAILY
     Route: 048

REACTIONS (4)
  - CORONARY ARTERY DISEASE [None]
  - HYPERTENSIVE HEART DISEASE [None]
  - MYOCARDIAL INFARCTION [None]
  - WEIGHT INCREASED [None]
